FAERS Safety Report 7163982-3 (Version None)
Quarter: 2010Q4

REPORT INFORMATION
  Report Type: 
  Country: None (occurrence: None)
  Receive Date: 20101215
  Receipt Date: 20101203
  Transmission Date: 20110411
  Serious: Yes (Hospitalization)
  Sender: FDA-Public Use
  Company Number: A0803562A

PATIENT
  Age: 53 Year
  Sex: Male
  Weight: 109.1 kg

DRUGS (11)
  1. AVANDIA [Suspect]
     Dosage: 8MG PER DAY
     Route: 048
     Dates: start: 20030101, end: 20070801
  2. ATENOLOL [Concomitant]
  3. DIOVAN [Concomitant]
  4. CADUET [Concomitant]
  5. HUMALOG [Concomitant]
  6. FUROSEMIDE [Concomitant]
  7. CLONIDINE [Concomitant]
  8. LISINOPRIL [Concomitant]
  9. VICODIN [Concomitant]
  10. IBUPROFEN [Concomitant]
  11. VIAGRA [Concomitant]

REACTIONS (2)
  - CEREBROVASCULAR ACCIDENT [None]
  - TRANSIENT ISCHAEMIC ATTACK [None]
